FAERS Safety Report 8765002 (Version 1)
Quarter: 2012Q4

REPORT INFORMATION
  Report Type: 
  Country: US (occurrence: US)
  Receive Date: 20120903
  Receipt Date: 20120903
  Transmission Date: 20130627
  Serious: Yes (Hospitalization)
  Sender: FDA-Public Use
  Company Number: US-BIOGENIDEC-2012BI033281

PATIENT
  Age: 54 Year
  Sex: Female

DRUGS (1)
  1. TYSABRI [Suspect]
     Indication: MULTIPLE SCLEROSIS
     Route: 042
     Dates: start: 20110921

REACTIONS (6)
  - Sepsis [Not Recovered/Not Resolved]
  - Urinary tract infection [Unknown]
  - Non-alcoholic steatohepatitis [Recovered/Resolved]
  - Hepatic enzyme increased [Unknown]
  - Hypotension [Unknown]
  - Early satiety [Unknown]
